FAERS Safety Report 8343143-2 (Version None)
Quarter: 2012Q2

REPORT INFORMATION
  Report Type: 
  Country: None (occurrence: None)
  Receive Date: 20120508
  Receipt Date: 20120430
  Transmission Date: 20120825
  Serious: Yes (Disabling)
  Sender: FDA-Public Use
  Company Number: GB-PFIZER INC-2012105652

PATIENT
  Age: 71 Year
  Sex: Female
  Weight: 84.4 kg

DRUGS (8)
  1. AMITRIPTYLINE HCL [Concomitant]
  2. SULFASALAZINE [Suspect]
     Dosage: 1 G, 2X/DAY
     Route: 048
     Dates: start: 20120229
  3. OMEPRAZOLE [Concomitant]
  4. SULFASALAZINE [Suspect]
     Indication: RHEUMATOID ARTHRITIS
     Dosage: 500MG DAILY
     Route: 048
     Dates: start: 20120229
  5. NAPROXEN [Concomitant]
     Dosage: 250 MG, 2X/DAY
  6. TRAMADOL HYDROCHLORIDE [Concomitant]
  7. BENDROFLUMETHIAZIDE [Concomitant]
  8. CITALOPRAM HYDROBROMIDE [Concomitant]

REACTIONS (6)
  - PYREXIA [None]
  - RASH [None]
  - LIVER FUNCTION TEST ABNORMAL [None]
  - DIARRHOEA [None]
  - HALLUCINATION [None]
  - VOMITING [None]
